FAERS Safety Report 5461359-X (Version None)
Quarter: 2007Q3

REPORT INFORMATION
  Report Type: 
  Country: None (occurrence: None)
  Receive Date: 20070920
  Receipt Date: 20070913
  Transmission Date: 20080115
  Serious: Yes (Hospitalization, Other)
  Sender: FDA-Public Use
  Company Number: DE-JNJFOC-20070702810

PATIENT
  Sex: Female

DRUGS (7)
  1. RISPERDAL [Suspect]
     Dosage: 2-0-0
  2. RISPERDAL [Suspect]
     Dosage: 4-0-0
  3. RISPERDAL [Suspect]
     Indication: SCHIZOPHRENIA
     Dosage: 0-0-6
  4. VALPROATE SODIUM [Concomitant]
     Dosage: 600-0-800MG
  5. EUTHYROX [Concomitant]
     Dosage: 100-0-0
  6. DIPIPERONE [Concomitant]
     Dosage: 0-0-4
  7. AKINETON [Concomitant]

REACTIONS (1)
  - VISUAL FIELD DEFECT [None]
